FAERS Safety Report 8832471 (Version 1)
Quarter: 2012Q4

REPORT INFORMATION
  Report Type: Spontaneous
  Country: US (occurrence: None)
  Receive Date: 20121005
  Receipt Date: 20121005
  Transmission Date: 20130627
  Serious: Yes (Hospitalization)
  Sender: FDA-Public Use
  Company Number: None

PATIENT
  Age: 72 Year
  Sex: Male

DRUGS (1)
  1. CEPHALEXIN [Suspect]
     Indication: INFECTION
     Dosage: 500 MG TID PO
     Route: 048
     Dates: start: 20120919, end: 20120920

REACTIONS (3)
  - Drug hypersensitivity [None]
  - Rash [None]
  - Eosinophilia [None]
